FAERS Safety Report 8274859-4 (Version None)
Quarter: 2012Q2

REPORT INFORMATION
  Report Type: 
  Country: None (occurrence: None)
  Receive Date: 20120411
  Receipt Date: 20120404
  Transmission Date: 20120825
  Serious: Yes (Other)
  Sender: FDA-Public Use
  Company Number: IT-JNJFOC-20120402187

PATIENT
  Age: 60 Year
  Sex: Male

DRUGS (2)
  1. AKINETON [Suspect]
     Indication: SELF INJURIOUS BEHAVIOUR
     Route: 048
     Dates: start: 20120404, end: 20120404
  2. RISPERDAL [Suspect]
     Indication: SELF INJURIOUS BEHAVIOUR
     Route: 048
     Dates: start: 20120404, end: 20120404

REACTIONS (3)
  - SLUGGISHNESS [None]
  - SELF INJURIOUS BEHAVIOUR [None]
  - VOMITING [None]
